FAERS Safety Report 12956484 (Version 1)
Quarter: 2016Q4

REPORT INFORMATION
  Report Type: Spontaneous
  Country: US (occurrence: US)
  Receive Date: 20161118
  Receipt Date: 20161118
  Transmission Date: 20170207
  Serious: No
  Sender: FDA-Public Use
  Company Number: US-SHIRE-US201617259

PATIENT
  Age: 71 Year
  Sex: Female

DRUGS (2)
  1. XIIDRA [Suspect]
     Active Substance: LIFITEGRAST
     Indication: DRY EYE
     Dosage: 1 GTT (EACH EYE), 2X/DAY:BID
     Route: 047
     Dates: start: 201611, end: 201611
  2. FLOVENT [Concomitant]
     Active Substance: FLUTICASONE PROPIONATE
     Indication: ASTHMA
     Dosage: 220 ?G, AS REQ^D (1-2 PUFFS AS NEEDED)
     Route: 055

REACTIONS (6)
  - Pharyngeal oedema [Recovered/Resolved]
  - Oropharyngeal pain [Recovered/Resolved]
  - Vision blurred [Recovered/Resolved]
  - Eye pruritus [Unknown]
  - Product quality issue [Unknown]
  - Instillation site irritation [Recovered/Resolved]

NARRATIVE: CASE EVENT DATE: 201611
